FAERS Safety Report 24872441 (Version 1)
Quarter: 2025Q1

REPORT INFORMATION
  Report Type: Spontaneous
  Country: ZA (occurrence: ZA)
  Receive Date: 20250122
  Receipt Date: 20250122
  Transmission Date: 20250409
  Serious: Yes (Other)
  Sender: ALKEM
  Company Number: ZA-ALKEM LABORATORIES LIMITED-ZA-ALKEM-2024-21540

PATIENT
  Age: 74 Year
  Sex: Female

DRUGS (1)
  1. MORPHINE SULFATE [Suspect]
     Active Substance: MORPHINE SULFATE
     Indication: Product used for unknown indication
     Route: 037

REACTIONS (2)
  - Respiratory depression [Unknown]
  - Hypotension [Unknown]
